FAERS Safety Report 5994230-5 (Version None)
Quarter: 2008Q4

REPORT INFORMATION
  Report Type: 
  Country: None (occurrence: None)
  Receive Date: 20081212
  Receipt Date: 20080905
  Transmission Date: 20090506
  Serious: No
  Sender: FDA-Public Use
  Company Number: US-ABBOTT-08P-163-0474375-00

PATIENT
  Sex: Female
  Weight: 104.42 kg

DRUGS (8)
  1. HUMIRA [Suspect]
     Indication: CROHN'S DISEASE
     Dates: start: 20080809
  2. HUMIRA [Suspect]
  3. HUMIRA [Suspect]
  4. HUMIRA [Suspect]
  5. FAMOTIDINE [Concomitant]
     Indication: DYSPEPSIA
  6. THIAMINE HCL [Concomitant]
     Indication: ANAEMIA
     Route: 050
     Dates: start: 20080301
  7. IRON [Concomitant]
     Indication: ANAEMIA
     Route: 050
     Dates: start: 20060101
  8. BUDESONIDE [Concomitant]
     Indication: CROHN'S DISEASE
     Route: 048
     Dates: start: 20050101

REACTIONS (1)
  - ACCIDENTAL EXPOSURE [None]
